FAERS Safety Report 5949151-0 (Version None)
Quarter: 2008Q4

REPORT INFORMATION
  Report Type: 
  Country: None (occurrence: None)
  Receive Date: 20081111
  Receipt Date: 20081110
  Transmission Date: 20090506
  Serious: Yes (Other)
  Sender: FDA-Public Use
  Company Number: US-ROXANE LABORATORIES, INC.-2008-BP-03388RO

PATIENT
  Sex: Female

DRUGS (29)
  1. PREDNISONE TAB [Suspect]
     Indication: RENAL TRANSPLANT
     Route: 048
     Dates: start: 20020819
  2. PREDNISONE TAB [Suspect]
     Route: 048
     Dates: start: 20020819
  3. BELATACEPT [Suspect]
     Indication: RENAL TRANSPLANT
     Route: 042
     Dates: start: 20020819
  4. CELLCEPT [Suspect]
     Indication: RENAL TRANSPLANT
     Route: 048
     Dates: start: 20020819
  5. MACROBID [Concomitant]
     Dates: start: 20040922
  6. MACROBID [Concomitant]
     Dates: start: 20070515
  7. BACTRIM [Concomitant]
     Dates: start: 20041022
  8. BACTRIM [Concomitant]
     Dates: start: 20070515
  9. MULTI-VITAMIN [Concomitant]
     Dates: start: 20020820
  10. CALCIUM [Concomitant]
     Dates: start: 20030529
  11. VITAMIN D [Concomitant]
     Dates: start: 20030529
  12. MECLIZINE [Concomitant]
     Dates: start: 20040206
  13. TENORMIN [Concomitant]
     Dates: start: 20050203
  14. FLUCONAZOLE [Concomitant]
     Dates: start: 20051215
  15. DYNACIRC [Concomitant]
     Dates: start: 20050306
  16. TEMAZEPAM [Concomitant]
     Dates: start: 20060315
  17. TEMAZEPAM [Concomitant]
     Dates: start: 20060306
  18. SERTRALINE [Concomitant]
     Dates: start: 20060601
  19. NYSTATIN [Concomitant]
     Dates: start: 20060913
  20. NYSTATIN [Concomitant]
     Dates: start: 20070515
  21. FLU VACCINE [Concomitant]
     Dates: start: 20061010
  22. PRAVACHOL [Concomitant]
     Dates: start: 20070111
  23. METOCLOPRAMIDE [Concomitant]
     Dates: start: 20070111
  24. AVAPRO [Concomitant]
     Dates: start: 20080401
  25. ZETIA [Concomitant]
     Dates: start: 20080308
  26. LORTAB [Concomitant]
     Dates: start: 20080306
  27. NEXIUM [Concomitant]
     Dates: start: 20070306
  28. ZOCOR [Concomitant]
     Dates: start: 20080401
  29. CALCIUM WITH VITAMIN D [Concomitant]
     Dates: start: 20080320

REACTIONS (2)
  - BASAL CELL CARCINOMA [None]
  - SQUAMOUS CELL CARCINOMA [None]
